FAERS Safety Report 9967499 (Version 1)
Quarter: 2014Q1

REPORT INFORMATION
  Report Type: Report from Study
  Country: US (occurrence: US)
  Receive Date: 20140305
  Receipt Date: 20140305
  Transmission Date: 20141002
  Serious: No
  Sender: FDA-Public Use
  Company Number: US-ABBVIE-13P-163-1138500-00

PATIENT
  Age: 26 Year
  Sex: Female

DRUGS (4)
  1. HUMIRA [Suspect]
     Indication: COLITIS ULCERATIVE
     Route: 058
     Dates: start: 20130322, end: 20130712
  2. UCERIS [Concomitant]
     Indication: COLITIS ULCERATIVE
     Dosage: 9MG DAILY
     Route: 048
  3. IMURAN [Concomitant]
     Indication: COLITIS ULCERATIVE
     Dosage: 150MG DAILY
     Route: 048
  4. PRILOSEC [Concomitant]
     Indication: COLITIS ULCERATIVE
     Dosage: DAILY
     Route: 048

REACTIONS (1)
  - Drug ineffective [Not Recovered/Not Resolved]
